FAERS Safety Report 8870317 (Version 1)
Quarter: 2012Q4

REPORT INFORMATION
  Report Type: Spontaneous
  Country: US (occurrence: None)
  Receive Date: 20121026
  Receipt Date: 20121026
  Transmission Date: 20130627
  Serious: Yes (Other)
  Sender: FDA-Public Use
  Company Number: None

PATIENT
  Age: 54 Year
  Sex: Female

DRUGS (1)
  1. TYSABRI [Suspect]
     Indication: MS
     Dosage: q4wks
     Route: 042
     Dates: start: 20120131, end: 20120914

REACTIONS (3)
  - Nuclear magnetic resonance imaging abnormal [None]
  - Spinal disorder [None]
  - Urinary tract infection [None]
